FAERS Safety Report 8458557-X (Version None)
Quarter: 2012Q2

REPORT INFORMATION
  Report Type: 
  Country: None (occurrence: None)
  Receive Date: 20120622
  Receipt Date: 20120613
  Transmission Date: 20120825
  Serious: No
  Sender: FDA-Public Use
  Company Number: US-PFIZER INC-2012103736

PATIENT
  Sex: Female

DRUGS (2)
  1. XALKORI [Suspect]
     Dosage: 250 MG, 2X/DAY (TAKE 1 CAPSULE TWICE DAILY)
     Route: 048
     Dates: start: 20120423
  2. XALKORI [Suspect]
     Indication: LUNG NEOPLASM MALIGNANT
     Dosage: 250 MG, 2X/DAY
     Route: 048
     Dates: start: 20120326

REACTIONS (7)
  - DIARRHOEA [None]
  - DISEASE PROGRESSION [None]
  - LUNG NEOPLASM MALIGNANT [None]
  - VOMITING [None]
  - DYSPEPSIA [None]
  - DECREASED APPETITE [None]
  - NAUSEA [None]
